FAERS Safety Report 16343681 (Version 1)
Quarter: 2019Q2

REPORT INFORMATION
  Report Type: Spontaneous
  Country: US (occurrence: US)
  Receive Date: 20190522
  Receipt Date: 20190522
  Transmission Date: 20190711
  Serious: Yes (Other)
  Sender: FDA-Public Use
  Company Number: US-BAYER-2019-097719

PATIENT
  Age: 61 Year
  Sex: Female
  Weight: 51 kg

DRUGS (6)
  1. PHILLIPS^ FIBER GOOD PLUS ENERGY SUPPORT GUMMIES [Suspect]
     Active Substance: VITAMINS
     Indication: GASTROINTESTINAL DISORDER
     Dosage: UNK
     Route: 048
  2. BAYER ASPIRIN [Suspect]
     Active Substance: ASPIRIN
     Indication: GASTROINTESTINAL DISORDER
     Dosage: UNK
     Route: 048
  3. MIRALAX [Suspect]
     Active Substance: POLYETHYLENE GLYCOL 3350
     Indication: GASTROINTESTINAL DISORDER
     Route: 048
  4. MILK OF MAGNESIA ORIGINAL [Suspect]
     Active Substance: MAGNESIUM HYDROXIDE
     Dosage: UNK
     Route: 048
  5. PROZAC [Concomitant]
     Active Substance: FLUOXETINE HYDROCHLORIDE
  6. KLONOPIN [Concomitant]
     Active Substance: CLONAZEPAM

REACTIONS (6)
  - Vomiting [Unknown]
  - Incorrect dose administered [Unknown]
  - Constipation [Unknown]
  - Drug hypersensitivity [Unknown]
  - Incorrect dosage administered [Unknown]
  - Product use in unapproved indication [None]
